APPROVED DRUG PRODUCT: VORICONAZOLE
Active Ingredient: VORICONAZOLE
Strength: 50MG
Dosage Form/Route: TABLET;ORAL
Application: A091658 | Product #001
Applicant: TEVA PHARMACEUTICALS USA
Approved: Apr 6, 2012 | RLD: No | RS: No | Type: DISCN